FAERS Safety Report 14265849 (Version 6)
Quarter: 2018Q3

REPORT INFORMATION
  Report Type: Spontaneous
  Country: US (occurrence: US)
  Receive Date: 20171209
  Receipt Date: 20180920
  Transmission Date: 20181010
  Serious: Yes (Hospitalization, Other)
  Sender: FDA-Public Use
  Company Number: US-BRISTOL-MYERS SQUIBB COMPANY-BMS-2017-107848

PATIENT
  Sex: Female
  Weight: 86.17 kg

DRUGS (1)
  1. ORENCIA [Suspect]
     Active Substance: ABATACEPT
     Indication: RHEUMATOID ARTHRITIS
     Dosage: 125 MG, QWK
     Route: 058
     Dates: start: 201209

REACTIONS (5)
  - Fall [Unknown]
  - Influenza [Unknown]
  - Haemorrhage [Unknown]
  - Lower limb fracture [Unknown]
  - Ligament rupture [Unknown]
